FAERS Safety Report 5939090-3 (Version None)
Quarter: 2008Q4

REPORT INFORMATION
  Report Type: 
  Country: None (occurrence: None)
  Receive Date: 20081103
  Receipt Date: 20081029
  Transmission Date: 20090506
  Serious: Yes (Death)
  Sender: FDA-Public Use
  Company Number: A0754660A

PATIENT

DRUGS (1)
  1. AVANDIA [Suspect]
     Route: 065
     Dates: start: 20060713, end: 20060731

REACTIONS (1)
  - MYOCARDIAL INFARCTION [None]
